FAERS Safety Report 4937088-5 (Version None)
Quarter: 2006Q1

REPORT INFORMATION
  Report Type: 
  Country: None (occurrence: None)
  Receive Date: 20060307
  Receipt Date: 20060307
  Transmission Date: 20060701
  Serious: Yes (Hospitalization)
  Sender: FDA-Public Use
  Company Number: None

PATIENT
  Age: 52 Year
  Sex: Female
  Weight: 103 kg

DRUGS (11)
  1. ASPIRIN [Suspect]
     Dosage: 325MG PO QD
     Route: 048
  2. PLAVIX [Suspect]
     Indication: CEREBROVASCULAR ACCIDENT
     Dosage: 75MG PO DAILY
  3. ACCUPRIL [Concomitant]
  4. LIPITOR [Concomitant]
  5. LEVOXYL [Concomitant]
  6. POTASSIUM [Concomitant]
  7. HYDROCHLOROTHIAZIDE [Concomitant]
  8. ZOLOFT [Concomitant]
  9. GLUCOPHAGE [Concomitant]
  10. OTC ZANTAC [Concomitant]
  11. GLUCOTROL [Concomitant]

REACTIONS (3)
  - ABDOMINAL PAIN UPPER [None]
  - HAEMATEMESIS [None]
  - NAUSEA [None]
